FAERS Safety Report 7638304-1 (Version None)
Quarter: 2011Q3

REPORT INFORMATION
  Report Type: 
  Country: None (occurrence: None)
  Receive Date: 20110727
  Receipt Date: 20110727
  Transmission Date: 20111222
  Serious: Yes (Other)
  Sender: FDA-Public Use
  Company Number: None

PATIENT
  Age: 57 Year
  Sex: Male
  Weight: 61.234 kg

DRUGS (1)
  1. TOBRAMYCIN [Suspect]
     Indication: REMOVAL OF FOREIGN BODY
     Dosage: ONE DROP INTO EYE
     Route: 047
     Dates: start: 20110711, end: 20110716

REACTIONS (4)
  - OCULAR HYPERAEMIA [None]
  - BLEPHAROSPASM [None]
  - EYELID OEDEMA [None]
  - ERYTHEMA OF EYELID [None]
